FAERS Safety Report 6938997-8 (Version None)
Quarter: 2010Q3

REPORT INFORMATION
  Report Type: 
  Country: None (occurrence: None)
  Receive Date: 20100824
  Receipt Date: 20090811
  Transmission Date: 20110219
  Serious: No
  Sender: FDA-Public Use
  Company Number: US-MYLANLABS-2009S1014434

PATIENT
  Age: 58 Year
  Sex: Female

DRUGS (4)
  1. LISINOPRIL AND HYDROCHLOROTHIAZIDE [Suspect]
     Indication: BLOOD PRESSURE INCREASED
     Route: 048
     Dates: start: 20080101
  2. LISINOPRIL AND HYDROCHLOROTHIAZIDE [Suspect]
     Route: 048
     Dates: start: 20080101
  3. MOTRIN [Concomitant]
     Indication: BACK PAIN
     Route: 048
  4. ZOLOFT [Concomitant]
     Indication: DEPRESSION
     Route: 048

REACTIONS (3)
  - FATIGUE [None]
  - HYPERSENSITIVITY [None]
  - SENSATION OF HEAVINESS [None]
